FAERS Safety Report 11186583 (Version 8)
Quarter: 2017Q1

REPORT INFORMATION
  Report Type: Report from Study
  Country: BR (occurrence: BR)
  Receive Date: 20150613
  Receipt Date: 20170210
  Transmission Date: 20170428
  Serious: Yes (Other)
  Sender: FDA-Public Use
  Company Number: PHHY2015BR057103

PATIENT
  Sex: Male
  Weight: 100 kg

DRUGS (5)
  1. EXJADE [Suspect]
     Active Substance: DEFERASIROX
     Dosage: 1 DF, QD
     Route: 048
  2. EXJADE [Suspect]
     Active Substance: DEFERASIROX
     Indication: IRON OVERLOAD
     Dosage: 1 DF, QD (IN THE AFTERNOON)
     Route: 048
     Dates: start: 201209
  3. EXJADE [Suspect]
     Active Substance: DEFERASIROX
     Dosage: 250 MG, QOD (EVERY OTHER DAY/EVERY TWO DAYS)
     Route: 048
  4. EXJADE [Suspect]
     Active Substance: DEFERASIROX
     Dosage: 250 MG, Q72H
     Route: 048
     Dates: end: 20170125
  5. EXJADE [Suspect]
     Active Substance: DEFERASIROX
     Dosage: 1 DF, QOD (EVERY 48 HOURS)
     Route: 048

REACTIONS (5)
  - Benign neoplasm of thyroid gland [Recovered/Resolved]
  - Serum ferritin increased [Unknown]
  - Weight decreased [Unknown]
  - Inappropriate schedule of drug administration [Unknown]
  - Wrong technique in product usage process [Unknown]

NARRATIVE: CASE EVENT DATE: 2014
